FAERS Safety Report 15483355 (Version 1)
Quarter: 2018Q4

REPORT INFORMATION
  Report Type: Spontaneous
  Country: US (occurrence: US)
  Receive Date: 20181010
  Receipt Date: 20181010
  Transmission Date: 20190205
  Serious: No
  Sender: FDA-Public Use
  Company Number: US-TARO-2018TAR00074

PATIENT
  Age: 36 Year
  Sex: Male
  Weight: 92.97 kg

DRUGS (1)
  1. MUPIROCIN OINTMENT USP 2% [Suspect]
     Active Substance: MUPIROCIN
     Indication: SINUS DISORDER
     Dosage: MIXED ENTIRE TUBE WITH 8 OZ WATER AND SALINE NASAL PACKET. USED ENTIRE 8 OZ MIXTURE.
     Route: 045
     Dates: start: 20180126, end: 20180126

REACTIONS (5)
  - Incorrect route of product administration [Recovered/Resolved]
  - Paraesthesia [Not Recovered/Not Resolved]
  - Off label use [Recovered/Resolved]
  - Nausea [Recovered/Resolved]
  - Wrong technique in product usage process [Recovered/Resolved]

NARRATIVE: CASE EVENT DATE: 20180126
